FAERS Safety Report 7995757-7 (Version None)
Quarter: 2011Q4

REPORT INFORMATION
  Report Type: 
  Country: None (occurrence: None)
  Receive Date: 20111220
  Receipt Date: 20111213
  Transmission Date: 20120403
  Serious: Yes (Hospitalization, Other)
  Sender: FDA-Public Use
  Company Number: US-SANOFI-AVENTIS-2011SA081516

PATIENT
  Sex: Male

DRUGS (7)
  1. LYRICA [Concomitant]
  2. DILANTIN [Concomitant]
  3. PLAVIX [Suspect]
     Dates: start: 20070101
  4. NORTRIPTYLINE HCL [Concomitant]
  5. SEROQUEL [Concomitant]
  6. METHADONE HCL [Concomitant]
  7. ASPIRIN [Concomitant]

REACTIONS (3)
  - CHEST PAIN [None]
  - HAEMATOCHEZIA [None]
  - PANCREATITIS [None]
